FAERS Safety Report 6936611-9 (Version None)
Quarter: 2010Q3

REPORT INFORMATION
  Report Type: 
  Country: None (occurrence: None)
  Receive Date: 20100823
  Receipt Date: 20100810
  Transmission Date: 20110219
  Serious: Yes (Death)
  Sender: FDA-Public Use
  Company Number: ES-ROCHE-720309

PATIENT
  Age: 71 Year
  Sex: Female

DRUGS (7)
  1. ROACTEMRA [Suspect]
     Indication: RHEUMATOID ARTHRITIS
     Dosage: FORM: INFUSION
     Route: 043
     Dates: start: 20100706, end: 20100706
  2. METHOTREXATE [Concomitant]
     Route: 058
  3. MORPHINE [Concomitant]
  4. CIPRALEX [Concomitant]
  5. NOCTAMID [Concomitant]
  6. SALAZOPYRINA [Concomitant]
  7. VALSARTAN [Concomitant]

REACTIONS (1)
  - DEATH [None]
